FAERS Safety Report 10901514 (Version 1)
Quarter: 2015Q1

REPORT INFORMATION
  Report Type: Spontaneous
  Country: JP (occurrence: JP)
  Receive Date: 20150310
  Receipt Date: 20150310
  Transmission Date: 20150721
  Serious: Yes (Other)
  Sender: FDA-Public Use
  Company Number: JP-ASTELLAS-2015US004450

PATIENT
  Age: 19 Year

DRUGS (1)
  1. AMBISOME [Suspect]
     Active Substance: AMPHOTERICIN B
     Indication: PNEUMONIA FUNGAL
     Route: 065
     Dates: start: 20121207, end: 20121225

REACTIONS (1)
  - Interstitial lung disease [Recovering/Resolving]
